FAERS Safety Report 25261715 (Version 2)
Quarter: 2025Q3

REPORT INFORMATION
  Report Type: Report from Study
  Country: US (occurrence: US)
  Receive Date: 20250502
  Receipt Date: 20250730
  Transmission Date: 20251021
  Serious: Yes (Hospitalization, Other)
  Sender: TAKEDA
  Company Number: US-KAMADA LIMITED-2018US001842

PATIENT
  Sex: Male
  Weight: 79 kg

DRUGS (2)
  1. GLASSIA [Suspect]
     Active Substance: .ALPHA.1-PROTEINASE INHIBITOR HUMAN
     Indication: Alpha-1 antitrypsin deficiency
     Dosage: UNK UNK, 1/WEEK
  2. GLASSIA [Suspect]
     Active Substance: .ALPHA.1-PROTEINASE INHIBITOR HUMAN
     Dosage: 60 MG/KG ,1/WEEK
     Dates: start: 20160201

REACTIONS (3)
  - Pneumonia [Not Recovered/Not Resolved]
  - Abdominal pain upper [Unknown]
  - Chest pain [Unknown]
